FAERS Safety Report 8776417 (Version 4)
Quarter: 2013Q1

REPORT INFORMATION
  Report Type: Report from Study
  Country: HU (occurrence: HU)
  Receive Date: 20120910
  Receipt Date: 20130207
  Transmission Date: 20140127
  Serious: Yes (Hospitalization)
  Sender: FDA-Public Use
  Company Number: PHHO2012HU012836

PATIENT
  Age: 60 Year
  Sex: Female
  Weight: 51 kg

DRUGS (11)
  1. BLINDED GP2013 [Suspect]
     Indication: NON-HODGKIN^S LYMPHOMA
     Dosage: CODE NOT BROKEN
     Route: 042
     Dates: start: 20120719, end: 20120809
  2. MABTHERA [Suspect]
     Indication: NON-HODGKIN^S LYMPHOMA
     Dosage: CODE NOT BROKEN
     Route: 042
     Dates: start: 20120719, end: 20120809
  3. BLINDED NO TREATMENT RECEIVED [Suspect]
     Indication: NON-HODGKIN^S LYMPHOMA
     Dosage: CODE NOT BROKEN
     Route: 042
     Dates: start: 20120719, end: 20120809
  4. CYCLOPHOSPHAMIDE [Concomitant]
     Indication: CHEMOTHERAPY
     Dosage: UNK
     Route: 042
     Dates: start: 20120809
  5. VINCRISTINE [Concomitant]
     Indication: CHEMOTHERAPY
     Dosage: UNK
     Route: 042
     Dates: start: 20120809
  6. PREDNISONE [Concomitant]
     Indication: CHEMOTHERAPY
     Dosage: UNK
     Route: 048
     Dates: start: 20120809
  7. CLEXANE [Concomitant]
     Indication: PROPHYLAXIS
     Dosage: 0.6 ML, DAY
     Dates: start: 20120522, end: 20120830
  8. LOKREN [Concomitant]
     Indication: HYPERTENSION
     Dosage: 10 MG/ DAY
     Dates: start: 2003
  9. IRBESARTAN [Concomitant]
     Indication: HYPERTENSION
     Dosage: 150 MG/DAY
     Dates: start: 2011
  10. MEFORAL [Concomitant]
     Indication: DIABETES MELLITUS
     Dosage: 500 MG, BID
     Route: 048
     Dates: start: 201205
  11. PANTOPRAZOLE [Concomitant]
     Indication: PROPHYLAXIS
     Dosage: 40 MG, BID
     Route: 048
     Dates: start: 20120719

REACTIONS (1)
  - Abdominal pain [Recovering/Resolving]
